FAERS Safety Report 4292856-0 (Version None)
Quarter: 2004Q1

REPORT INFORMATION
  Report Type: 
  Country: None (occurrence: None)
  Receive Date: 20040210
  Receipt Date: 20040127
  Transmission Date: 20041129
  Serious: Yes (Other)
  Sender: FDA-Public Use
  Company Number: BE-JNJFOC-20040200102

PATIENT
  Age: 83 Year
  Sex: Female

DRUGS (8)
  1. PROPULSID [Suspect]
     Indication: IMPAIRED GASTRIC EMPTYING
     Dosage: 10 MG, 4 IN  DAY, UNKNOWN
     Dates: start: 20030225
  2. LANSOPRAZOLE [Concomitant]
  3. PLENDIL [Concomitant]
  4. VENORUTON (TROXERUTIN) [Concomitant]
  5. DUSPATALIN (MEBEVERINE HYDROCHLORIDE) [Concomitant]
  6. IMPOTAL (LACTITOL) [Concomitant]
  7. TRANSIPEG (MACROGOL) [Concomitant]
  8. LORAZEPAM [Concomitant]

REACTIONS (2)
  - COLON CANCER [None]
  - IRON DEFICIENCY ANAEMIA [None]
